FAERS Safety Report 17062781 (Version 3)
Quarter: 2019Q4

REPORT INFORMATION
  Report Type: Spontaneous
  Country: DE (occurrence: DE)
  Receive Date: 20191122
  Receipt Date: 20191213
  Transmission Date: 20200122
  Serious: Yes (Death)
  Sender: FDA-Public Use
  Company Number: DE-ROCHE-2470839

PATIENT
  Age: 70 Year
  Weight: 100 kg

DRUGS (6)
  1. FLUCONAZOL [Concomitant]
     Active Substance: FLUCONAZOLE
     Indication: ANTIFUNGAL TREATMENT
     Route: 048
  2. ORELOX [Concomitant]
     Active Substance: CEFPODOXIME
     Indication: ANTIBIOTIC PROPHYLAXIS
     Route: 048
  3. RUXOLITINIB [Suspect]
     Active Substance: RUXOLITINIB
     Indication: CHRONIC GRAFT VERSUS HOST DISEASE
     Route: 048
     Dates: start: 20170826
  4. PREGABALIN. [Concomitant]
     Active Substance: PREGABALIN
     Indication: POLYNEUROPATHY
     Route: 048
     Dates: start: 201701, end: 201706
  5. PREDNISON [Suspect]
     Active Substance: PREDNISONE
     Indication: CHRONIC GRAFT VERSUS HOST DISEASE
     Dosage: MOST RECENT DOSE PRIOR TO AE 22/JUN/2017
     Route: 048
     Dates: start: 20170601
  6. CELLCEPT [Suspect]
     Active Substance: MYCOPHENOLATE MOFETIL\MYCOPHENOLATE MOFETIL HYDROCHLORIDE
     Indication: CHRONIC GRAFT VERSUS HOST DISEASE
     Route: 048
     Dates: start: 20170720

REACTIONS (4)
  - Acute myeloid leukaemia [Fatal]
  - Septic shock [Fatal]
  - Neutropenia [Fatal]
  - Pain [Fatal]
